FAERS Safety Report 17829896 (Version 1)
Quarter: 2020Q2

REPORT INFORMATION
  Report Type: Spontaneous
  Country: FR (occurrence: FR)
  Receive Date: 20200527
  Receipt Date: 20200527
  Transmission Date: 20200714
  Serious: Yes (Other)
  Sender: FDA-Public Use
  Company Number: FR-TAKEDA-2020TUS023813

PATIENT
  Age: 49 Year
  Sex: Female

DRUGS (2)
  1. BRINTELLIX [Suspect]
     Active Substance: VORTIOXETINE HYDROBROMIDE
     Indication: DEPRESSION
     Dosage: 5 MILLIGRAM, QD
     Route: 065
  2. BRINTELLIX [Suspect]
     Active Substance: VORTIOXETINE HYDROBROMIDE
     Dosage: 10 MILLIGRAM, QD
     Route: 065

REACTIONS (9)
  - Hot flush [Unknown]
  - Feeling abnormal [Unknown]
  - Asthenia [Unknown]
  - Suicidal ideation [Unknown]
  - Apathy [Unknown]
  - Malaise [Unknown]
  - Hyperhidrosis [Unknown]
  - Negative thoughts [Unknown]
  - Loss of personal independence in daily activities [Unknown]
